FAERS Safety Report 6018775-7 (Version None)
Quarter: 2008Q4

REPORT INFORMATION
  Report Type: 
  Country: None (occurrence: None)
  Receive Date: 20081222
  Receipt Date: 20081208
  Transmission Date: 20090506
  Serious: Yes (Hospitalization)
  Sender: FDA-Public Use
  Company Number: 310002L08USA

PATIENT
  Age: 32 Year
  Sex: Female

DRUGS (4)
  1. GONAL-F [Suspect]
     Indication: ASSISTED FERTILISATION
     Dosage: 300 IU, 1 IN 1 DAYS
  2. GANIRELIX ACETATE (GANIRELIX) [Suspect]
     Indication: ASSISTED FERTILISATION
     Dosage: 250 MCG
  3. PROGESTERONE [Concomitant]
  4. HCG (CHRONIC GONADOTROPHIN) [Suspect]
     Indication: ASSISTED FERTILISATION
     Dosage: 10000 IU, ONCE

REACTIONS (7)
  - LIGAMENT DISORDER [None]
  - NAUSEA [None]
  - OPERATIVE HAEMORRHAGE [None]
  - OVARIAN CYST [None]
  - OVARIAN ENLARGEMENT [None]
  - OVARIAN TORSION [None]
  - VOMITING [None]
